FAERS Safety Report 5365586-1 (Version None)
Quarter: 2007Q2

REPORT INFORMATION
  Report Type: 
  Country: None (occurrence: None)
  Receive Date: 20070621
  Receipt Date: 20070615
  Transmission Date: 20071010
  Serious: Yes (Hospitalization)
  Sender: FDA-Public Use
  Company Number: DE-ROCHE-477483

PATIENT
  Age: 33 Year
  Sex: Female

DRUGS (2)
  1. PEGASYS [Suspect]
     Route: 058
     Dates: start: 20060718
  2. COPEGUS [Suspect]
     Route: 048
     Dates: start: 20060718

REACTIONS (1)
  - CEREBROVASCULAR ACCIDENT [None]
